FAERS Safety Report 19756136 (Version 4)
Quarter: 2021Q4

REPORT INFORMATION
  Report Type: Spontaneous
  Country: US (occurrence: US)
  Receive Date: 20210827
  Receipt Date: 20211022
  Transmission Date: 20220303
  Serious: No
  Sender: FDA-Public Use
  Company Number: US-GLAXOSMITHKLINE-USCH2021057965

PATIENT
  Age: 66 Year
  Sex: Female

DRUGS (1)
  1. NICODERM CQ [Suspect]
     Active Substance: NICOTINE
     Indication: Smoking cessation therapy
     Dosage: UNK
     Dates: start: 20210819, end: 20210824

REACTIONS (4)
  - Application site pruritus [Recovered/Resolved]
  - Dysgeusia [Recovered/Resolved]
  - Product dose omission issue [Unknown]
  - Product complaint [Unknown]
